FAERS Safety Report 4879077-5 (Version None)
Quarter: 2005Q4

REPORT INFORMATION
  Report Type: 
  Country: None (occurrence: None)
  Receive Date: 20051209
  Receipt Date: 20050609
  Transmission Date: 20060501
  Serious: Yes (Other)
  Sender: FDA-Public Use
  Company Number: USA-2003-0004240

PATIENT
  Sex: Male

DRUGS (5)
  1. OXYCONTIN [Suspect]
     Dosage: 20 MG, SEE IMAGE
     Route: 065
     Dates: start: 19990804, end: 20000518
  2. VALIUM [Concomitant]
  3. AMBIEN [Concomitant]
  4. HALCION [Concomitant]
  5. CELEXA [Concomitant]

REACTIONS (7)
  - ANXIETY [None]
  - DEPRESSION [None]
  - DRUG DEPENDENCE [None]
  - DRUG INEFFECTIVE [None]
  - DRUG WITHDRAWAL SYNDROME [None]
  - PAIN [None]
  - SUICIDE ATTEMPT [None]
